FAERS Safety Report 5129124-0 (Version None)
Quarter: 2006Q4

REPORT INFORMATION
  Report Type: 
  Country: None (occurrence: None)
  Receive Date: 20061011
  Receipt Date: 20060921
  Transmission Date: 20070319
  Serious: Yes (Other)
  Sender: FDA-Public Use
  Company Number: FR200609004981

PATIENT
  Age: 75 Year
  Sex: Female

DRUGS (7)
  1. FORTEO [Suspect]
     Indication: OSTEOPOROSIS
     Dosage: 20 UG, DAILY (1/D), SUBCUTANEOUS
     Route: 058
     Dates: start: 20060926
  2. FORTEO [Concomitant]
  3. PAROXETINE HYDROCHLORIDE [Concomitant]
  4. TANAKAN (GINKGO BILOBA EXTRACT) [Concomitant]
  5. SYMPATHYL (CRATAEGUS EXTRACT, EXTRACTUM BOLDO, METHENAMINE, PEPTONE, P [Concomitant]
  6. LEXOMIL (BROMAZEPAM) [Concomitant]
  7. ZOLPIDEM TARTRATE [Concomitant]

REACTIONS (3)
  - AMNESIA [None]
  - LOSS OF CONSCIOUSNESS [None]
  - MALAISE [None]
